FAERS Safety Report 16471348 (Version 2)
Quarter: 2019Q2

REPORT INFORMATION
  Report Type: Spontaneous
  Country: JP (occurrence: JP)
  Receive Date: 20190624
  Receipt Date: 20190626
  Transmission Date: 20190711
  Serious: Yes (Hospitalization, Other)
  Sender: FDA-Public Use
  Company Number: JP-BAUSCH-BL-2019-018297

PATIENT
  Age: 75 Year
  Sex: Male

DRUGS (8)
  1. 5-FU (FLUOROURACIL) [Suspect]
     Active Substance: FLUOROURACIL
     Route: 065
  2. CISPLATIN. [Suspect]
     Active Substance: CISPLATIN
     Indication: CHEMOTHERAPY
     Dosage: DIV (DIRECT INTRAVENOUS) 1 DAY EVERY CYCLE (QCY)
     Route: 040
  3. CISPLATIN. [Suspect]
     Active Substance: CISPLATIN
     Route: 065
  4. DOCETAXEL. [Suspect]
     Active Substance: DOCETAXEL
     Indication: CHEMOTHERAPY
     Dosage: DIV (DIRECT INTRAVENOUS) 1 DAY EVERY CYCLE (QCY)
     Route: 040
  5. DOCETAXEL. [Suspect]
     Active Substance: DOCETAXEL
     Dosage: QCY
     Route: 065
  6. 5-FU (FLUOROURACIL) [Suspect]
     Active Substance: FLUOROURACIL
     Indication: CHEMOTHERAPY
     Dosage: CIV (CONTINUOUS INTRAVENOUS) 5 DAY EVERY CYCLE (QCY)
     Route: 040
  7. 5-FU (FLUOROURACIL) [Suspect]
     Active Substance: FLUOROURACIL
     Dosage: DIV (DIRECT INTRAVENOUS) 1 DAY EVERY CYCLE (QCY)
     Route: 040
  8. 5-FU (FLUOROURACIL) [Suspect]
     Active Substance: FLUOROURACIL
     Indication: CHEMOTHERAPY
     Route: 065

REACTIONS (6)
  - Pyrexia [Recovered/Resolved]
  - Abdominal pain upper [Recovered/Resolved]
  - Abscess [Recovered/Resolved]
  - Oesophageal perforation [Recovered/Resolved]
  - Inflammation [Recovered/Resolved]
  - Pleural effusion [Recovered/Resolved]
